FAERS Safety Report 16884754 (Version 1)
Quarter: 2019Q4

REPORT INFORMATION
  Report Type: Spontaneous
  Country: US (occurrence: US)
  Receive Date: 20191003
  Receipt Date: 20191003
  Transmission Date: 20200122
  Serious: Yes (Disabling)
  Sender: FDA-Public Use
  Company Number: None

PATIENT
  Age: 64 Year
  Sex: Female
  Weight: 72 kg

DRUGS (1)
  1. ESTRADIOL VAGINAL INSERTS USP 10 MCG [Suspect]
     Active Substance: ESTRADIOL
     Indication: VULVOVAGINAL DRYNESS
     Dosage: ?          QUANTITY:1 TABLET(S);OTHER FREQUENCY:TWICE PER WEEK;?
     Route: 067
     Dates: start: 20190815, end: 20190924

REACTIONS (3)
  - Vaginal discharge [None]
  - Vaginal odour [None]
  - Product substitution issue [None]

NARRATIVE: CASE EVENT DATE: 20190924
